FAERS Safety Report 4532030-3 (Version None)
Quarter: 2004Q4

REPORT INFORMATION
  Report Type: 
  Country: None (occurrence: None)
  Receive Date: 20041220
  Receipt Date: 20040901
  Transmission Date: 20050328
  Serious: Yes (Disabling)
  Sender: FDA-Public Use
  Company Number: JP-GLAXOSMITHKLINE-B0344490A

PATIENT
  Age: 71 Year
  Sex: Female
  Weight: 50 kg

DRUGS (9)
  1. VALTREX [Suspect]
     Indication: HERPES ZOSTER
     Dosage: 1000MG THREE TIMES PER DAY
     Route: 048
     Dates: start: 20040806, end: 20040810
  2. BLOPRESS [Concomitant]
     Dosage: 8MG PER DAY
     Route: 048
     Dates: start: 20020422
  3. MOBIC [Concomitant]
     Dosage: 10MG PER DAY
     Route: 048
     Dates: start: 20020111
  4. LANSOPRAZOLE [Concomitant]
     Dosage: 15MG PER DAY
     Route: 048
     Dates: start: 20020111
  5. URSO [Concomitant]
     Dosage: 300MG PER DAY
     Route: 048
     Dates: start: 20000907
  6. GASMOTIN [Concomitant]
     Dosage: 15MG PER DAY
     Route: 048
     Dates: start: 20000726
  7. ADETPHOS [Concomitant]
     Dosage: 180MG PER DAY
     Route: 048
     Dates: start: 20001215
  8. MARZULENE S [Concomitant]
     Dosage: 1.5G PER DAY
     Route: 048
     Dates: start: 20020111
  9. JUZEN-TAIHO-TO [Concomitant]
     Dosage: 7.5G PER DAY
     Route: 048
     Dates: start: 20020111

REACTIONS (5)
  - BLOOD CREATININE INCREASED [None]
  - BLOOD UREA INCREASED [None]
  - DECREASED APPETITE [None]
  - RENAL FAILURE ACUTE [None]
  - RENAL IMPAIRMENT [None]
